FAERS Safety Report 5630394-0 (Version None)
Quarter: 2008Q1

REPORT INFORMATION
  Report Type: 
  Country: None (occurrence: None)
  Receive Date: 20080212
  Receipt Date: 20080205
  Transmission Date: 20080703
  Serious: Yes (Death)
  Sender: FDA-Public Use
  Company Number: 163-21880-08020381

PATIENT
  Age: 77 Year
  Sex: Female

DRUGS (2)
  1. REVLIMID [Suspect]
     Indication: MULTIPLE MYELOMA
     Dosage: 10-5MG, DAILY, ORAL ; 10 DAILY ORAL
     Route: 048
     Dates: start: 20070403, end: 20070501
  2. REVLIMID [Suspect]
     Indication: MULTIPLE MYELOMA
     Dosage: 10-5MG, DAILY, ORAL ; 10 DAILY ORAL
     Route: 048
     Dates: start: 20071206

REACTIONS (1)
  - DEATH [None]
